FAERS Safety Report 13538001 (Version 1)
Quarter: 2017Q2

REPORT INFORMATION
  Report Type: Spontaneous
  Country: US (occurrence: US)
  Receive Date: 20170511
  Receipt Date: 20170511
  Transmission Date: 20170830
  Serious: Yes (Other)
  Sender: FDA-Public Use
  Company Number: US-ABBVIE-17K-163-1966421-00

PATIENT
  Sex: Female

DRUGS (1)
  1. HUMIRA [Suspect]
     Active Substance: ADALIMUMAB
     Indication: CROHN^S DISEASE
     Route: 058

REACTIONS (4)
  - Anastomotic ulcer haemorrhage [Unknown]
  - Diarrhoea haemorrhagic [Recovering/Resolving]
  - Abdominal pain [Recovering/Resolving]
  - Decreased appetite [Recovering/Resolving]
